FAERS Safety Report 9681820 (Version 1)
Quarter: 2013Q4

REPORT INFORMATION
  Report Type: Report from Study
  Country: CA (occurrence: CA)
  Receive Date: 20131111
  Receipt Date: 20131111
  Transmission Date: 20140711
  Serious: Yes (Other)
  Sender: FDA-Public Use
  Company Number: CA-JNJFOC-20131102878

PATIENT
  Age: 21 Year
  Sex: Male
  Weight: 88.45 kg

DRUGS (2)
  1. REMICADE [Suspect]
     Indication: CROHN^S DISEASE
     Route: 042
     Dates: start: 201302
  2. IMURAN [Concomitant]
     Route: 048

REACTIONS (5)
  - Amnesia [Unknown]
  - Headache [Unknown]
  - Confusional state [Unknown]
  - Head injury [Unknown]
  - Dizziness [Unknown]
